FAERS Safety Report 24026791 (Version 1)
Quarter: 2024Q2

REPORT INFORMATION
  Report Type: Spontaneous
  Country: GB (occurrence: GB)
  Receive Date: 20240628
  Receipt Date: 20240628
  Transmission Date: 20240716
  Serious: Yes (Other)
  Sender: FDA-Public Use
  Company Number: None

PATIENT
  Age: 55 Year
  Sex: Female

DRUGS (2)
  1. AZACITIDINE [Suspect]
     Active Substance: AZACITIDINE
     Indication: Acute myeloid leukaemia
  2. VENETOCLAX [Suspect]
     Active Substance: VENETOCLAX
     Indication: Acute myeloid leukaemia
     Dosage: PATIENT WITH IDH1MUT, CEBP ALPHA MUTATED (NOT BZIP) ACUTE MYELOID LEUKEMIA TREATED WITH FOUR CYCLES
     Route: 048

REACTIONS (1)
  - Acute myeloid leukaemia recurrent [Unknown]
